FAERS Safety Report 7734242-4 (Version None)
Quarter: 2011Q3

REPORT INFORMATION
  Report Type: 
  Country: None (occurrence: None)
  Receive Date: 20110907
  Receipt Date: 20110902
  Transmission Date: 20111222
  Serious: Yes (Hospitalization, Other)
  Sender: FDA-Public Use
  Company Number: US-PFIZER INC-2011207880

PATIENT
  Sex: Male

DRUGS (9)
  1. REVLIMID [Suspect]
     Dosage: 10 MG, 1X/DAY
     Route: 048
  2. LASIX [Concomitant]
     Indication: OEDEMA
  3. PROTONIX [Suspect]
     Indication: GASTROOESOPHAGEAL REFLUX DISEASE
     Dosage: 40 MG, 1X/DAY
     Dates: start: 20101108
  4. ALLOPURINOL [Concomitant]
     Indication: GOUT
     Dosage: 100 MG, UNK
  5. DECADRON [Concomitant]
     Indication: MULTIPLE MYELOMA
  6. REVLIMID [Suspect]
     Dosage: 15 MG, 1X/DAY
     Route: 048
     Dates: start: 20110201
  7. REVLIMID [Suspect]
     Dosage: 25 MG, 1X/DAY
     Route: 048
     Dates: start: 20110308, end: 20110621
  8. REVLIMID [Suspect]
     Indication: MULTIPLE MYELOMA
     Dosage: 10 MG, 1X/DAY
     Route: 048
     Dates: start: 20101108
  9. MIRTAZAPINE [Concomitant]
     Indication: DEPRESSION
     Dosage: 15 MG, UNK

REACTIONS (2)
  - CLOSTRIDIAL INFECTION [None]
  - POLYURIA [None]
